FAERS Safety Report 19845718 (Version 1)
Quarter: 2021Q3

REPORT INFORMATION
  Report Type: Spontaneous
  Country: AE (occurrence: AE)
  Receive Date: 20210917
  Receipt Date: 20210917
  Transmission Date: 20211014
  Serious: Yes (Other)
  Sender: FDA-Public Use
  Company Number: AE-GLAXOSMITHKLINE-AE2021EME193877

PATIENT

DRUGS (1)
  1. SOTROVIMAB FOR COVID?19 BY INTERIM ORDER/EMERGENCY USE AUTHORIZATION [Suspect]
     Active Substance: SOTROVIMAB
     Indication: COVID-19
     Dosage: 500 MG
     Route: 042

REACTIONS (1)
  - Atrial fibrillation [Recovered/Resolved]
